FAERS Safety Report 20035735 (Version 2)
Quarter: 2021Q4

REPORT INFORMATION
  Report Type: Spontaneous
  Country: US (occurrence: US)
  Receive Date: 20211104
  Receipt Date: 20211122
  Transmission Date: 20220303
  Serious: No
  Sender: FDA-Public Use
  Company Number: US-009507513-2111USA000911

PATIENT
  Age: 82 Year
  Sex: Male

DRUGS (9)
  1. VERQUVO [Suspect]
     Active Substance: VERICIGUAT
     Dosage: 5 MILLIGRAMS DAILY
     Route: 048
  2. WARFARIN [Concomitant]
     Active Substance: WARFARIN
     Dosage: 1/2 TABLET DAILY
  3. WARFARIN [Concomitant]
     Active Substance: WARFARIN
     Dosage: 1 TABLET DAILY ON SUNDAY
  4. ALDACTONE [Concomitant]
     Active Substance: SPIRONOLACTONE
     Dosage: 25 MILLIGRAM, TWICE A DAY ON TUESDAY, THURSDAY AND SATURDAY, DAILY ON MONDAY, WEDNESDAY, FRIDAY AND
  5. VITAMIN D3 [Concomitant]
     Active Substance: CHOLECALCIFEROL
     Dosage: 1000 IU INTERNATIONAL UNIT(S) DAILY
  6. LASIX [Concomitant]
     Active Substance: FUROSEMIDE
     Dosage: 40 MILLIGRAMS TWICE DAILY EXCEPT ON SATURDAY AND SUNDAY WHEN HE TAKES ONE TABLET DAILY
  7. DIGOXIN [Concomitant]
     Active Substance: DIGOXIN
     Dosage: 40 MILLIGRAMS  3 TIMES WEEKLY ON MONDAY, WEDNESDAY AND FRIDAY
  8. LIPITOR [Concomitant]
     Active Substance: ATORVASTATIN CALCIUM
     Dosage: 10 DAILY
  9. METOLAZONE [Concomitant]
     Active Substance: METOLAZONE
     Dosage: 2.5 MILLIGRAMS, 3 TIMES WEEKLY ON MONDAY, WEDNESDAY AND FRIDAY

REACTIONS (1)
  - Cough [Unknown]

NARRATIVE: CASE EVENT DATE: 20211001
